FAERS Safety Report 8821232 (Version 1)
Quarter: 2012Q4

REPORT INFORMATION
  Report Type: 
  Country: GB (occurrence: GB)
  Receive Date: 20121002
  Receipt Date: 20121002
  Transmission Date: 20130627
  Serious: Yes (Other)
  Sender: FDA-Public Use
  Company Number: GB-TEVA-360426ISR

PATIENT
  Age: 18 Year
  Sex: Male
  Weight: 101.6 kg

DRUGS (3)
  1. LEVOTHYROXINE [Suspect]
     Indication: THYROID THERAPY
     Route: 048
     Dates: start: 19900507, end: 20120808
  2. PROZAC [Concomitant]
  3. 5-HYDROXYTRYPTOPHAN [Concomitant]

REACTIONS (5)
  - Depression [Recovering/Resolving]
  - Product substitution issue [Unknown]
  - Weight increased [Recovering/Resolving]
  - Decreased interest [Recovering/Resolving]
  - Mania [Recovering/Resolving]
